FAERS Safety Report 20730892 (Version 2)
Quarter: 2022Q2

REPORT INFORMATION
  Report Type: Report from Study
  Country: US (occurrence: US)
  Receive Date: 20220420
  Receipt Date: 20220506
  Transmission Date: 20220721
  Serious: Yes (Hospitalization, Other)
  Sender: FDA-Public Use
  Company Number: US-HORIZON THERAPEUTICS-HZN-2021-009968

PATIENT

DRUGS (28)
  1. KRYSTEXXA [Suspect]
     Active Substance: PEGLOTICASE
     Indication: Product used for unknown indication
     Dosage: 8 MG/ML
     Route: 042
     Dates: start: 20211026
  2. KRYSTEXXA [Suspect]
     Active Substance: PEGLOTICASE
     Dosage: 8 MG/ML
     Route: 042
     Dates: start: 20211118
  3. KRYSTEXXA [Suspect]
     Active Substance: PEGLOTICASE
     Dosage: UNK
     Route: 042
     Dates: start: 20220112
  4. KRYSTEXXA [Suspect]
     Active Substance: PEGLOTICASE
     Dosage: 6TH INFUSION
     Route: 042
     Dates: start: 20220323
  5. KRYSTEXXA [Suspect]
     Active Substance: PEGLOTICASE
     Dosage: 7TH INFUSION
     Route: 042
     Dates: start: 20220406
  6. METHOTREXATE [Suspect]
     Active Substance: METHOTREXATE
     Indication: Product used for unknown indication
     Dosage: 2.5 MG, 6 TABLETS ONCE PER WEEK
     Route: 048
     Dates: start: 20211130
  7. METHOTREXATE [Suspect]
     Active Substance: METHOTREXATE
     Dosage: 2.5 MG
     Route: 048
     Dates: start: 20211209
  8. FAMOTIDINE [Concomitant]
     Active Substance: FAMOTIDINE
     Dosage: 1 DOSAGE FORM, QD
     Route: 048
  9. ATORVASTATIN CALCIUM [Concomitant]
     Active Substance: ATORVASTATIN CALCIUM
     Dosage: 1 DOSAGE FORM, QD
     Route: 048
     Dates: end: 20220128
  10. CHLORHEXIDINE GLUCONATE [Concomitant]
     Active Substance: CHLORHEXIDINE GLUCONATE
     Dosage: 15 ML, BID
     Route: 048
  11. FENOFIBRATE [Concomitant]
     Active Substance: FENOFIBRATE
     Dosage: 1 DOSAGE FORM, QD
     Route: 048
     Dates: start: 20211130
  12. CYCLOBENZAPRINE HYDROCHLORIDE [Concomitant]
     Active Substance: CYCLOBENZAPRINE HYDROCHLORIDE
     Dosage: 1 DOSAGE FORM, EVERY 8 HOURS
     Route: 048
  13. BONIVA [Concomitant]
     Active Substance: IBANDRONATE SODIUM
     Dosage: 1 DOSAGE FORM, MONTHLY
     Route: 048
  14. VITAMIN D3 [Concomitant]
     Active Substance: CHOLECALCIFEROL
     Dosage: 50 UG (2,000 UNITS)
  15. TADALAFIL [Concomitant]
     Active Substance: TADALAFIL
     Dosage: 20 MG
  16. ALBUTEROL SULFATE [Concomitant]
     Active Substance: ALBUTEROL SULFATE
     Dosage: 90 MCG/ ACTUATION BREATH ACTIVATED POWDER INHALER
  17. MITIGARE [Concomitant]
     Active Substance: COLCHICINE
     Dosage: 0.6 UG
     Route: 048
  18. NASACORT ALLERGY 24HR [Concomitant]
     Active Substance: TRIAMCINOLONE ACETONIDE
     Dosage: 55 UG
     Route: 045
  19. ACETAMINOPHEN [Concomitant]
     Active Substance: ACETAMINOPHEN
     Dosage: 650 MG
     Route: 048
  20. VITAMIN B12 [Concomitant]
     Active Substance: CYANOCOBALAMIN
     Dosage: 100 UG
  21. TRAZODONE HCL [Concomitant]
     Active Substance: TRAZODONE HYDROCHLORIDE
     Dosage: 150 MG
     Route: 048
  22. ONDANSETRON [Concomitant]
     Active Substance: ONDANSETRON
     Dosage: 4 MG
     Route: 048
  23. LIDOCAINE 5% EXTRA [Concomitant]
     Route: 061
  24. HYDROMORPHONE HCL [Concomitant]
     Active Substance: HYDROMORPHONE HYDROCHLORIDE
     Dosage: 4 MG
     Route: 048
  25. FERRETTS [Concomitant]
     Dosage: 325 MG (106 MG IRON)
     Route: 048
  26. TORSEMIDE [Concomitant]
     Active Substance: TORSEMIDE
     Dosage: 1 DOSAGE FORM, QD
     Route: 048
  27. OZEMPIC [Concomitant]
     Active Substance: SEMAGLUTIDE
  28. PREDNISONE [Concomitant]
     Active Substance: PREDNISONE
     Dosage: 1 TABLET, QD
     Route: 048
     Dates: start: 20220128

REACTIONS (9)
  - Circulatory collapse [Unknown]
  - Gait disturbance [Unknown]
  - Blood potassium increased [Unknown]
  - Blood phosphorus increased [Unknown]
  - Peritonitis [Unknown]
  - Limb discomfort [Unknown]
  - Blood glucose increased [Not Recovered/Not Resolved]
  - Chronic idiopathic pain syndrome [Unknown]
  - Asthenia [Not Recovered/Not Resolved]

NARRATIVE: CASE EVENT DATE: 20220323
